FAERS Safety Report 10419932 (Version 2)
Quarter: 2014Q4

REPORT INFORMATION
  Report Type: Spontaneous
  Country: US (occurrence: None)
  Receive Date: 20140828
  Receipt Date: 20141022
  Transmission Date: 20150528
  Serious: Yes (Life-Threatening, Hospitalization)
  Sender: FDA-Public Use
  Company Number: 1713747-2014-999119

PATIENT
  Age: 70 Year
  Sex: Male
  Weight: 87.3 kg

DRUGS (5)
  1. 0.9% SODIUM CHLORIDE INJECTION [Suspect]
     Active Substance: SODIUM CHLORIDE
     Indication: CHRONIC KIDNEY DISEASE
     Dosage: HEMODIALYSIS
     Dates: start: 20140812
  2. NATURALYTE [Concomitant]
     Active Substance: ACETIC ACID\SODIUM ACETATE
  3. FRESENIUS 2008K HEMODIALYSIS MACHINE [Concomitant]
     Active Substance: DEVICE
  4. DIALYZER [Concomitant]
  5. GRANUFLO [Concomitant]
     Active Substance: ACETIC ACID\SODIUM ACETATE

REACTIONS (9)
  - Dialysis [None]
  - Cardiac failure congestive [None]
  - Hypertension [None]
  - Hypoglycaemia [None]
  - Procedural hypotension [None]
  - Pulmonary oedema [None]
  - Dyspnoea [None]
  - Pain [None]
  - Haemodialysis-induced symptom [None]

NARRATIVE: CASE EVENT DATE: 20140812
